FAERS Safety Report 9143752 (Version 1)
Quarter: 2013Q1

REPORT INFORMATION
  Report Type: Spontaneous
  Country: GB (occurrence: GB)
  Receive Date: 20130306
  Receipt Date: 20130306
  Transmission Date: 20140127
  Serious: Yes (Other)
  Sender: FDA-Public Use
  Company Number: GB-TEVA-388720ISR

PATIENT
  Age: 3 Decade
  Sex: Female

DRUGS (6)
  1. MYCOPHENOLATE MOFETIL [Suspect]
     Indication: SYSTEMIC LUPUS ERYTHEMATOSUS
     Dosage: 1000 MILLIGRAM DAILY;
     Route: 065
  2. MYCOPHENOLATE MOFETIL [Suspect]
     Dosage: 3 GRAM DAILY;
     Route: 065
  3. MYCOPHENOLATE MOFETIL [Suspect]
     Dosage: 3 GRAM DAILY;
     Route: 065
  4. PREDNISOLONE [Concomitant]
     Indication: SYSTEMIC LUPUS ERYTHEMATOSUS
     Dosage: TAPERING REGIME; WITHDRAWN AFTER 2Y THEN RESTARTED AT UNSPECIFIED DOSAGE AFTER SLE RELAPSE
     Route: 048
  5. PREDNISOLONE [Concomitant]
     Dosage: 7.5 MILLIGRAM DAILY; REINTRODUCED WHEN A RELAPSE OF HER SLE OCCURRED 6-9 MONTHS LATER
     Route: 048
  6. HYDROXYCHLOROQUINE [Concomitant]
     Indication: SYSTEMIC LUPUS ERYTHEMATOSUS
     Route: 065

REACTIONS (6)
  - Aplasia pure red cell [Recovering/Resolving]
  - Cytomegalovirus gastrointestinal infection [Unknown]
  - Large intestinal ulcer [Unknown]
  - Glomerulonephritis [Unknown]
  - Systemic lupus erythematosus [Unknown]
  - Bone marrow failure [Unknown]
